FAERS Safety Report 4427476-8 (Version None)
Quarter: 2004Q3

REPORT INFORMATION
  Report Type: 
  Country: None (occurrence: None)
  Receive Date: 20040812
  Receipt Date: 20040805
  Transmission Date: 20050211
  Serious: Yes (Hospitalization, Disabling)
  Sender: FDA-Public Use
  Company Number: HQ3563123JUL2001

PATIENT
  Age: 42 Year
  Sex: Female

DRUGS (3)
  1. DIMETAPP [Suspect]
     Indication: SINUS CONGESTION
     Dosage: ORAL
     Route: 048
     Dates: end: 20000830
  2. DIMETAPP [Suspect]
     Indication: SINUS CONGESTION
     Dosage: ^RECOMMENDED DOSE^, ORAL
     Route: 048
     Dates: end: 20000831
  3. UNSPECIFIED HORMONE REPLACEMENT THERAPY AGENT (UNSPECIFIED HORMONE REP [Concomitant]

REACTIONS (12)
  - AMNESIA [None]
  - BALANCE DISORDER [None]
  - CEREBRAL INFARCTION [None]
  - COGNITIVE DISORDER [None]
  - CONVULSION [None]
  - DEPRESSION [None]
  - DIFFICULTY IN WALKING [None]
  - DISTURBANCE IN ATTENTION [None]
  - HEADACHE [None]
  - HEMIPARESIS [None]
  - HYPERTENSION [None]
  - MIGRAINE [None]
